FAERS Safety Report 12948315 (Version 1)
Quarter: 2016Q4

REPORT INFORMATION
  Report Type: Spontaneous
  Country: US (occurrence: US)
  Receive Date: 20161117
  Receipt Date: 20161117
  Transmission Date: 20170207
  Serious: Yes (Other)
  Sender: FDA-Public Use
  Company Number: US-ROCHE-1854021

PATIENT
  Age: 41 Year
  Sex: Female

DRUGS (12)
  1. ACTEMRA [Suspect]
     Active Substance: TOCILIZUMAB
     Indication: RHEUMATOID ARTHRITIS
     Route: 042
     Dates: start: 201309, end: 2013
  2. ARAVA [Suspect]
     Active Substance: LEFLUNOMIDE
     Indication: RHEUMATOID ARTHRITIS
     Route: 065
     Dates: start: 201002
  3. METHOTREXATE. [Suspect]
     Active Substance: METHOTREXATE
     Dosage: 6 TABLETS PER WEEK
     Route: 065
     Dates: start: 2016, end: 201608
  4. PREVNAR 13 [Concomitant]
     Active Substance: PNEUMOCOCCAL 13-VALENT CONJUGATE VACCINE
  5. METHOTREXATE. [Suspect]
     Active Substance: METHOTREXATE
     Indication: RHEUMATOID ARTHRITIS
     Dosage: 5 TABLETS PER WEEK
     Route: 065
     Dates: start: 201404, end: 2016
  6. TURMERIC [Concomitant]
     Active Substance: TURMERIC
  7. ENBREL [Suspect]
     Active Substance: ETANERCEPT
     Indication: RHEUMATOID ARTHRITIS
     Route: 065
     Dates: start: 200903, end: 201309
  8. PIROXICAM. [Concomitant]
     Active Substance: PIROXICAM
  9. XELJANZ [Concomitant]
     Active Substance: TOFACITINIB CITRATE
  10. ACTEMRA [Suspect]
     Active Substance: TOCILIZUMAB
     Route: 042
     Dates: start: 2013, end: 201311
  11. HUMIRA [Suspect]
     Active Substance: ADALIMUMAB
     Indication: RHEUMATOID ARTHRITIS
     Route: 065
     Dates: start: 200708, end: 200903
  12. PREDNISONE. [Concomitant]
     Active Substance: PREDNISONE

REACTIONS (10)
  - Fatigue [Unknown]
  - Hepatic enzyme increased [Unknown]
  - Obesity [Unknown]
  - Bursitis [Unknown]
  - Hypoaesthesia [Unknown]
  - Poor quality sleep [Unknown]
  - Pain [Unknown]
  - Rheumatoid arthritis [Unknown]
  - Hypertension [Unknown]
  - Osteoarthritis [Unknown]

NARRATIVE: CASE EVENT DATE: 200903
